FAERS Safety Report 9012754 (Version 2)
Quarter: 2013Q2

REPORT INFORMATION
  Report Type: Report from Study
  Country: US (occurrence: US)
  Receive Date: 20130114
  Receipt Date: 20130430
  Transmission Date: 20140414
  Serious: Yes (Hospitalization, Other)
  Sender: FDA-Public Use
  Company Number: US-ABBOTT-13P-163-1032881-00

PATIENT
  Age: 43 Year
  Sex: Male

DRUGS (8)
  1. HUMIRA [Suspect]
     Indication: CROHN^S DISEASE
     Dates: start: 1998
  2. HUMIRA [Suspect]
     Dosage: LOADING DOSE
     Dates: start: 20121230, end: 20121230
  3. TRILIPIX [Suspect]
     Indication: BLOOD CHOLESTEROL INCREASED
     Dates: start: 2010
  4. PRILOSEC [Concomitant]
     Indication: PRODUCT USED FOR UNKNOWN INDICATION
  5. PURINETHOL [Concomitant]
     Indication: CROHN^S DISEASE
  6. VITAMINS [Concomitant]
     Indication: PRODUCT USED FOR UNKNOWN INDICATION
  7. ENTOCORT EC [Concomitant]
     Indication: PRODUCT USED FOR UNKNOWN INDICATION
  8. ENTOCORT EC [Concomitant]

REACTIONS (6)
  - Umbilical hernia [Recovered/Resolved]
  - Crohn^s disease [Recovered/Resolved]
  - Small intestinal stenosis [Recovered/Resolved]
  - Small intestinal obstruction [Recovered/Resolved]
  - Blood cholesterol increased [Unknown]
  - No therapeutic response [Unknown]
